APPROVED DRUG PRODUCT: NORVASC
Active Ingredient: AMLODIPINE BESYLATE
Strength: EQ 5MG BASE
Dosage Form/Route: TABLET;ORAL
Application: N019787 | Product #002 | TE Code: AB
Applicant: VIATRIS SPECIALTY LLC
Approved: Jul 31, 1992 | RLD: Yes | RS: No | Type: RX